FAERS Safety Report 19250120 (Version 3)
Quarter: 2021Q2

REPORT INFORMATION
  Report Type: Spontaneous
  Country: US (occurrence: US)
  Receive Date: 20210512
  Receipt Date: 20210616
  Transmission Date: 20210717
  Serious: No
  Sender: FDA-Public Use
  Company Number: US-BRISTOL-MYERS SQUIBB COMPANY-BMS-2021-046161

PATIENT
  Age: 8 Year
  Sex: Female

DRUGS (4)
  1. ORENCIA [Suspect]
     Active Substance: ABATACEPT
     Indication: RHEUMATOID ARTHRITIS
     Dosage: 87.5 MILLIGRAM, QWK
     Route: 058
     Dates: start: 202006
  2. ORENCIA [Suspect]
     Active Substance: ABATACEPT
     Indication: RHEUMATOID ARTHRITIS
     Dosage: 87.5 MILLIGRAM, QWK
     Route: 058
     Dates: start: 202006
  3. ORENCIA [Suspect]
     Active Substance: ABATACEPT
     Indication: SCLERODERMA
  4. ORENCIA [Suspect]
     Active Substance: ABATACEPT
     Indication: SCLERODERMA

REACTIONS (3)
  - Pain [Unknown]
  - Intentional product use issue [Unknown]
  - Rheumatoid arthritis [Unknown]
